FAERS Safety Report 5858826-3 (Version None)
Quarter: 2008Q3

REPORT INFORMATION
  Report Type: 
  Country: None (occurrence: None)
  Receive Date: 20080826
  Receipt Date: 20080819
  Transmission Date: 20090109
  Serious: Yes (Death, Hospitalization, Other)
  Sender: FDA-Public Use
  Company Number: JP-ABBOTT-08P-087-0452581-00

PATIENT
  Age: 75 Year
  Sex: Male

DRUGS (5)
  1. LEUPROLIDE ACETATE [Suspect]
     Indication: PROSTATE CANCER STAGE I
     Route: 058
     Dates: start: 20060421, end: 20070627
  2. LEUPROLIDE ACETATE [Suspect]
     Route: 058
     Dates: start: 20060224, end: 20060324
  3. DOCETAXEL [Suspect]
     Indication: LIP AND/OR ORAL CAVITY CANCER
     Route: 042
     Dates: start: 20070508, end: 20070621
  4. ACETYLSALICYLIC ACID SRT [Concomitant]
     Indication: ANGINA PECTORIS
     Route: 048
  5. CLARUTE R [Concomitant]
     Indication: HYPERTENSION
     Route: 048

REACTIONS (4)
  - INTERSTITIAL LUNG DISEASE [None]
  - LARYNGEAL CANCER [None]
  - LIP AND/OR ORAL CAVITY CANCER [None]
  - ORAL NEOPLASM [None]
